FAERS Safety Report 14099514 (Version 4)
Quarter: 2018Q1

REPORT INFORMATION
  Report Type: Spontaneous
  Country: FR (occurrence: FR)
  Receive Date: 20171017
  Receipt Date: 20180320
  Transmission Date: 20180508
  Serious: Yes (Hospitalization, Other)
  Sender: FDA-Public Use
  Company Number: FR-ASTELLAS-2017US025604

PATIENT
  Age: 76 Year
  Sex: Male

DRUGS (4)
  1. DEGARELIX [Suspect]
     Active Substance: DEGARELIX
     Indication: PRODUCT USED FOR UNKNOWN INDICATION
     Dosage: UNK, UNKNOWN FREQ.
     Route: 065
  2. XTANDI [Suspect]
     Active Substance: ENZALUTAMIDE
     Indication: PROSTATE CANCER
     Dosage: 160 MG (4 DF), ONCE DAILY IN THE MORNING
     Route: 048
     Dates: start: 201610
  3. CASODEX [Concomitant]
     Active Substance: BICALUTAMIDE
     Indication: PRODUCT USED FOR UNKNOWN INDICATION
     Dosage: UNK UNK, UNKNOWN FREQ.
     Route: 065
  4. XTANDI [Suspect]
     Active Substance: ENZALUTAMIDE
     Route: 048
     Dates: start: 20170702, end: 201801

REACTIONS (23)
  - Gastrooesophageal reflux disease [Recovering/Resolving]
  - Arthralgia [Recovered/Resolved]
  - Hallucination, visual [Unknown]
  - Metastases to bone [Unknown]
  - Catheter site infection [Recovered/Resolved]
  - Prostatic specific antigen increased [Not Recovered/Not Resolved]
  - Systemic inflammatory response syndrome [Unknown]
  - Pyelocaliectasis [Unknown]
  - Decreased appetite [Recovered/Resolved]
  - Prostatic specific antigen increased [Unknown]
  - Eye disorder [Unknown]
  - Bone neoplasm [Unknown]
  - Fatigue [Recovering/Resolving]
  - Pain [Unknown]
  - Fall [Recovered/Resolved]
  - Urinary tract infection [Recovered/Resolved]
  - Therapy cessation [Recovered/Resolved]
  - Drug ineffective [Unknown]
  - Weight decreased [Recovered/Resolved]
  - Abdominal pain upper [Recovered/Resolved]
  - Anxiety [Not Recovered/Not Resolved]
  - Therapy cessation [Recovered/Resolved]
  - Memory impairment [Recovering/Resolving]

NARRATIVE: CASE EVENT DATE: 2017
